FAERS Safety Report 9551845 (Version 1)
Quarter: 2013Q3

REPORT INFORMATION
  Report Type: Spontaneous
  Country: US (occurrence: None)
  Receive Date: 20130724
  Receipt Date: 20130724
  Transmission Date: 20140515
  Serious: Yes (Other)
  Sender: FDA-Public Use
  Company Number: PHEH2012US024376

PATIENT
  Age: 53 Year
  Sex: Female

DRUGS (7)
  1. GLEEVEC (IMATINIB) UNKNOWN [Suspect]
     Indication: CHRONIC MYELOID LEUKAEMIA
     Route: 048
  2. CYMBALTA (DULOXETINE HYDROCHLORIDE) [Concomitant]
  3. FENTANYL(FENTANYL) [Concomitant]
  4. SYNTHROID (LEVOTHYROXINE SODIUM) [Concomitant]
  5. LEXAPRO (ESCITALOPRAM OXALATE) [Concomitant]
  6. RAMIPRIL (RAMIPRIL) [Concomitant]
  7. CLONAZEPAM (CLONAZEPAM) (CLONAZEPAM) [Concomitant]

REACTIONS (9)
  - Pneumonia [None]
  - Cardiac failure [None]
  - Dyspnoea [None]
  - Oedema peripheral [None]
  - Weight increased [None]
  - Nausea [None]
  - Fatigue [None]
  - Fluid retention [None]
  - Drug ineffective [None]
